FAERS Safety Report 12203726 (Version 2)
Quarter: 2016Q2

REPORT INFORMATION
  Report Type: Report from Study
  Country: ES (occurrence: ES)
  Receive Date: 20160323
  Receipt Date: 20160406
  Transmission Date: 20160815
  Serious: Yes (Hospitalization)
  Sender: FDA-Public Use
  Company Number: ES-BAYER-2016-049742

PATIENT
  Age: 87 Year
  Sex: Male
  Weight: 90 kg

DRUGS (15)
  1. XARELTO [Suspect]
     Active Substance: RIVAROXABAN
     Indication: ATRIAL FIBRILLATION
     Dosage: DAILY DOSE 20 MG
     Route: 048
     Dates: start: 20151023
  2. ATACAND [Concomitant]
     Active Substance: CANDESARTAN CILEXETIL
     Indication: CARDIAC FAILURE
     Dosage: 16 MG, UNK
     Route: 048
     Dates: start: 20150723
  3. TRAVATAN [Concomitant]
     Active Substance: TRAVOPROST
     Indication: GLAUCOMA
     Dosage: 40 MCG
     Route: 061
     Dates: start: 20050830
  4. PARACETAMOL [Concomitant]
     Active Substance: ACETAMINOPHEN
     Indication: RESPIRATORY TRACT INFECTION VIRAL
     Dosage: UNK
     Route: 048
     Dates: start: 20151231, end: 20160104
  5. TORASEMIDE [Concomitant]
     Active Substance: TORSEMIDE
     Indication: CARDIAC FAILURE
     Dosage: 10 MG, UNK
     Route: 048
     Dates: start: 20150723, end: 20160128
  6. EPLERENONE. [Concomitant]
     Active Substance: EPLERENONE
     Indication: CARDIAC FAILURE
     Dosage: 25 MG, UNK
     Route: 048
     Dates: start: 20150723
  7. XARELTO [Suspect]
     Active Substance: RIVAROXABAN
     Indication: CEREBROVASCULAR ACCIDENT PROPHYLAXIS
     Dosage: UNK
  8. ALDACTONE [Concomitant]
     Active Substance: SPIRONOLACTONE
     Indication: CARDIAC FAILURE
     Dosage: 25 MG, QD
     Route: 048
     Dates: start: 20160105, end: 20160110
  9. OMEPRAZOLE. [Concomitant]
     Active Substance: OMEPRAZOLE
     Dosage: 20 MG, UNK
     Route: 048
     Dates: start: 20150723
  10. DAIVONEX [Concomitant]
     Active Substance: CALCIPOTRIENE
     Indication: PSORIASIS
     Dosage: 30 ML, UNK
     Route: 061
     Dates: start: 20040108
  11. FLUIDASA [Concomitant]
     Active Substance: PYRILAMINE
     Indication: RESPIRATORY TRACT INFECTION VIRAL
     Dosage: UNK
     Route: 048
     Dates: start: 20151231, end: 20160104
  12. ACTIRA [Concomitant]
     Active Substance: MOXIFLOXACIN HYDROCHLORIDE
     Dosage: 400 MG, UNK
     Route: 048
     Dates: start: 20151231, end: 20160104
  13. ULTRAVIST [Suspect]
     Active Substance: IOPROMIDE
     Indication: ANGIOGRAM PULMONARY
     Dosage: UNK UNK, ONCE
     Dates: start: 20160104, end: 20160104
  14. SERTRALINE [Concomitant]
     Active Substance: SERTRALINE HYDROCHLORIDE
     Indication: ADJUSTMENT DISORDER WITH DEPRESSED MOOD
     Dosage: 50 MG, UNK
     Route: 048
     Dates: start: 20140210
  15. COSOPT [Concomitant]
     Active Substance: DORZOLAMIDE HYDROCHLORIDE\TIMOLOL MALEATE
     Indication: GLAUCOMA
     Dosage: UNK
     Route: 061
     Dates: start: 20080306

REACTIONS (4)
  - Acute kidney injury [Recovered/Resolved]
  - Cardiac failure acute [Recovering/Resolving]
  - Urinary retention [Recovered/Resolved]
  - Pulmonary embolism [Recovered/Resolved]

NARRATIVE: CASE EVENT DATE: 20160104
